FAERS Safety Report 20855665 (Version 1)
Quarter: 2022Q2

REPORT INFORMATION
  Report Type: Spontaneous
  Country: US (occurrence: US)
  Receive Date: 20220520
  Receipt Date: 20220520
  Transmission Date: 20220721
  Serious: No
  Sender: FDA-Public Use
  Company Number: US-JNJFOC-20220532503

PATIENT
  Sex: Male

DRUGS (1)
  1. ZYTIGA [Suspect]
     Active Substance: ABIRATERONE ACETATE
     Indication: Product used for unknown indication
     Route: 048
     Dates: start: 20220427

REACTIONS (5)
  - Fatigue [Unknown]
  - Gastroenteritis viral [Unknown]
  - Muscle spasms [Unknown]
  - Constipation [Unknown]
  - Gout [Unknown]
